FAERS Safety Report 7191865-1 (Version None)
Quarter: 2010Q4

REPORT INFORMATION
  Report Type: 
  Country: None (occurrence: None)
  Receive Date: 20101223
  Receipt Date: 20101210
  Transmission Date: 20110411
  Serious: Yes (Hospitalization)
  Sender: FDA-Public Use
  Company Number: PHHY2010ZA84640

PATIENT
  Age: 55 Year
  Sex: Female

DRUGS (5)
  1. ACLASTA [Suspect]
     Dosage: 5 MG/100 ML
     Route: 042
     Dates: start: 20091001
  2. LIPITOR [Concomitant]
  3. CALCIUM SANDOZ [Concomitant]
  4. WARFARIN SODIUM [Concomitant]
  5. TAREG [Concomitant]
     Indication: HYPERTENSION
     Dosage: UNK
     Dates: start: 20030101

REACTIONS (1)
  - KIDNEY INFECTION [None]
